FAERS Safety Report 5976070-6 (Version None)
Quarter: 2008Q4

REPORT INFORMATION
  Report Type: 
  Country: None (occurrence: None)
  Receive Date: 20081202
  Receipt Date: 20081120
  Transmission Date: 20090506
  Serious: Yes (Other)
  Sender: FDA-Public Use
  Company Number: US-ROCHE-425888

PATIENT
  Sex: Female
  Weight: 61.7 kg

DRUGS (2)
  1. PEGASYS [Suspect]
     Route: 058
     Dates: start: 20050424, end: 20060501
  2. COPEGUS [Suspect]
     Route: 048
     Dates: start: 20050424, end: 20060501

REACTIONS (12)
  - ANGER [None]
  - CATARACT [None]
  - CHROMATURIA [None]
  - DEPRESSION [None]
  - DYSPHAGIA [None]
  - IRRITABILITY [None]
  - NAUSEA [None]
  - OSTEOPOROSIS [None]
  - OVARIAN DISORDER [None]
  - VIOLENCE-RELATED SYMPTOM [None]
  - WEIGHT DECREASED [None]
  - WITHDRAWAL SYNDROME [None]
